FAERS Safety Report 11637361 (Version 2)
Quarter: 2015Q4

REPORT INFORMATION
  Report Type: Spontaneous
  Country: US (occurrence: US)
  Receive Date: 20151016
  Receipt Date: 20151117
  Transmission Date: 20160304
  Serious: No
  Sender: FDA-Public Use
  Company Number: US-ELI_LILLY_AND_COMPANY-US201510002915

PATIENT
  Age: 63 Year
  Sex: Female
  Weight: 108.8 kg

DRUGS (4)
  1. HUMALOG [Suspect]
     Active Substance: INSULIN LISPRO
     Indication: TYPE 2 DIABETES MELLITUS
     Dosage: UNKNOWN
     Route: 058
  2. HYDROCHLOROTHIAZIDE. [Concomitant]
     Active Substance: HYDROCHLOROTHIAZIDE
     Indication: DIURETIC THERAPY
  3. HYDROCHLOROTHIAZIDE. [Concomitant]
     Active Substance: HYDROCHLOROTHIAZIDE
     Indication: BLOOD PRESSURE INCREASED
     Dosage: 25 MG, QD
  4. KLOR-CON [Concomitant]
     Active Substance: POTASSIUM CHLORIDE

REACTIONS (7)
  - Infusion site scar [Unknown]
  - Urine odour abnormal [Not Recovered/Not Resolved]
  - Infusion site irritation [Unknown]
  - Infusion site pain [Unknown]
  - Abnormal faeces [Not Recovered/Not Resolved]
  - Infusion site infection [Unknown]
  - Infusion site mass [Unknown]

NARRATIVE: CASE EVENT DATE: 20151006
